FAERS Safety Report 20351870 (Version 1)
Quarter: 2022Q1

REPORT INFORMATION
  Report Type: Spontaneous
  Country: US (occurrence: None)
  Receive Date: 20220118
  Receipt Date: 20220118
  Transmission Date: 20220423
  Serious: Yes (Other)
  Sender: FDA-Public Use
  Company Number: None

PATIENT
  Age: 57 Year
  Sex: Female
  Weight: 119 kg

DRUGS (1)
  1. BUPRENORPHINE SUBLINGUAL [Suspect]
     Active Substance: BUPRENORPHINE HYDROCHLORIDE
     Indication: Pain
     Dosage: OTHER QUANTITY : 1 FILM;?FREQUENCY : EVERY 12 HOURS;?
     Route: 002

REACTIONS (1)
  - Tooth injury [None]

NARRATIVE: CASE EVENT DATE: 20211201
